FAERS Safety Report 9405533 (Version 2)
Quarter: 2013Q3

REPORT INFORMATION
  Report Type: Spontaneous
  Country: FR (occurrence: FR)
  Receive Date: 20130717
  Receipt Date: 20130809
  Transmission Date: 20140515
  Serious: Yes (Other)
  Sender: FDA-Public Use
  Company Number: FR-BAXTER-2013BAX026706

PATIENT
  Age: 14 Year
  Sex: Male

DRUGS (1)
  1. TISSUCOL KIT 500 UI/ML, POUDRE, SOLUTION ET SOLVANT POUR COLLE INTRAL? [Suspect]
     Indication: SURGERY
     Route: 065
     Dates: start: 20120821, end: 20120821

REACTIONS (2)
  - No therapeutic response [Recovered/Resolved]
  - Drug ineffective [Recovered/Resolved]
